FAERS Safety Report 22619323 (Version 1)
Quarter: 2023Q2

REPORT INFORMATION
  Report Type: Spontaneous
  Country: HR (occurrence: HR)
  Receive Date: 20230620
  Receipt Date: 20230620
  Transmission Date: 20230721
  Serious: No
  Sender: FDA-Public Use
  Company Number: HR-PFM-2023-01525

PATIENT
  Age: 3 Month
  Sex: Female
  Weight: 5 kg

DRUGS (4)
  1. HEMANGEOL [Suspect]
     Active Substance: PROPRANOLOL HYDROCHLORIDE
     Indication: Ulcerated haemangioma
     Dosage: 2.5 MG, BID (2/DAY)
     Route: 048
     Dates: start: 20230301
  2. Antiflat drops [Concomitant]
     Indication: Product used for unknown indication
     Dosage: UNK
     Route: 065
  3. Oleovit d3 drops [Concomitant]
     Indication: Product used for unknown indication
     Dosage: UNK
     Route: 065
  4. LACTOBACILLUS REUTERI [Concomitant]
     Active Substance: LACTOBACILLUS REUTERI
     Indication: Product used for unknown indication
     Dosage: UNK
     Route: 065

REACTIONS (4)
  - Cough [Unknown]
  - Dyspnoea [Unknown]
  - Faeces hard [Unknown]
  - Abdominal pain [Unknown]

NARRATIVE: CASE EVENT DATE: 20230311
